FAERS Safety Report 14391415 (Version 4)
Quarter: 2018Q2

REPORT INFORMATION
  Report Type: Report from Study
  Country: CA (occurrence: CA)
  Receive Date: 20180116
  Receipt Date: 20180405
  Transmission Date: 20180711
  Serious: Yes (Other)
  Sender: FDA-Public Use
  Company Number: CA-BRISTOL-MYERS SQUIBB COMPANY-BMS-2017-084297

PATIENT
  Age: 67 Year
  Sex: Female

DRUGS (1)
  1. ABATACEPT [Suspect]
     Active Substance: ABATACEPT
     Indication: RHEUMATOID ARTHRITIS
     Dosage: 125 MG, QWK
     Route: 058
     Dates: start: 20170725

REACTIONS (11)
  - Anaemia [Unknown]
  - Fatigue [Not Recovered/Not Resolved]
  - Productive cough [Unknown]
  - Bronchitis [Unknown]
  - Cystitis [Not Recovered/Not Resolved]
  - Dyspnoea [Unknown]
  - Epicondylitis [Not Recovered/Not Resolved]
  - Internal haemorrhage [Unknown]
  - Arthritis [Not Recovered/Not Resolved]
  - Headache [Not Recovered/Not Resolved]
  - Nausea [Not Recovered/Not Resolved]

NARRATIVE: CASE EVENT DATE: 20170725
